FAERS Safety Report 18172339 (Version 1)
Quarter: 2020Q3

REPORT INFORMATION
  Report Type: Spontaneous
  Country: BR (occurrence: BR)
  Receive Date: 20200820
  Receipt Date: 20200820
  Transmission Date: 20201103
  Serious: Yes (Other)
  Sender: FDA-Public Use
  Company Number: BR-AMGEN-BRASP2013049854

PATIENT
  Age: 62 Year
  Sex: Female
  Weight: 92 kg

DRUGS (5)
  1. INDAPEN [INDAPAMIDE] [Concomitant]
     Indication: HYPERTENSION
     Dosage: 1.5 MG, 1X/DAY
  2. ENBREL [Suspect]
     Active Substance: ETANERCEPT
     Indication: PSORIATIC ARTHROPATHY
     Dosage: 50 MG, ONCE WEEKLY
     Route: 058
     Dates: start: 2011, end: 202002
  3. SYNTHROID [Concomitant]
     Active Substance: LEVOTHYROXINE SODIUM
     Indication: HYPERTHYROIDISM
     Dosage: 75 MG, 1X/DAY
  4. AAS [Concomitant]
     Active Substance: ASPIRIN
     Indication: HYPERTENSION
     Dosage: UNSPECIFIED DOSE 1X/DAY
  5. LOSARTAN POTASSIUM. [Concomitant]
     Active Substance: LOSARTAN POTASSIUM
     Indication: HYPERTENSION
     Dosage: 50 MG, 1X/DAY

REACTIONS (6)
  - Neuropathy peripheral [Unknown]
  - Burning sensation [Unknown]
  - Balance disorder [Unknown]
  - Pain in extremity [Unknown]
  - Arthralgia [Unknown]
  - Paraesthesia [Unknown]
